FAERS Safety Report 8407147-3 (Version None)
Quarter: 2012Q2

REPORT INFORMATION
  Report Type: 
  Country: None (occurrence: None)
  Receive Date: 20120604
  Receipt Date: 20120529
  Transmission Date: 20120825
  Serious: Yes (Death)
  Sender: FDA-Public Use
  Company Number: US-ROCHE-1068938

PATIENT
  Sex: Female
  Weight: 61.29 kg

DRUGS (14)
  1. 5-HTP [Concomitant]
  2. ST. JOHN'S WORT [Concomitant]
  3. COQ-10 [Concomitant]
  4. CLARITIN [Concomitant]
  5. URSODIOL [Concomitant]
  6. VITAMIN C [Concomitant]
  7. GINKO (UNK INGREDIENTS) [Concomitant]
  8. PREMARIN [Concomitant]
  9. BONIVA [Suspect]
     Indication: PRODUCT USED FOR UNKNOWN INDICATION
     Route: 065
  10. OMEGA 3-6-9 [Concomitant]
  11. D3 (UNK INGREDIENTS) [Concomitant]
  12. CALCIUM [Concomitant]
  13. PROTONIX [Concomitant]
  14. FOSAMAX [Concomitant]

REACTIONS (1)
  - HEPATIC NEOPLASM MALIGNANT [None]
